FAERS Safety Report 11291493 (Version 4)
Quarter: 2015Q3

REPORT INFORMATION
  Report Type: Spontaneous
  Country: BE (occurrence: BE)
  Receive Date: 20150722
  Receipt Date: 20150924
  Transmission Date: 20151125
  Serious: Yes (Hospitalization, Other)
  Sender: FDA-Public Use
  Company Number: BE-TEVA-579942ISR

PATIENT
  Age: 58 Year
  Sex: Female
  Weight: 64 kg

DRUGS (5)
  1. AMLODIPINE [Interacting]
     Active Substance: AMLODIPINE BESYLATE
     Route: 065
  2. INSULIN [Concomitant]
     Active Substance: INSULIN NOS
     Indication: DIABETES MELLITUS
     Route: 065
  3. VALSARTAN. [Suspect]
     Active Substance: VALSARTAN
     Indication: HYPERTENSION
     Dosage: LARGE OVERDOSE
     Route: 048
  4. VALSARTAN. [Interacting]
     Active Substance: VALSARTAN
     Route: 065
  5. AMLODIPINE [Interacting]
     Active Substance: AMLODIPINE BESYLATE
     Indication: HYPERTENSION
     Dosage: LARGE OVERDOSE
     Route: 048

REACTIONS (10)
  - Cardiac index increased [Recovered/Resolved]
  - Intentional overdose [Recovered/Resolved]
  - Pleural effusion [Recovered/Resolved]
  - Hyperglycaemia [Recovered/Resolved]
  - Vasoplegia syndrome [Recovered/Resolved]
  - Hypoglycaemia [Unknown]
  - Distributive shock [Recovered/Resolved]
  - Hypotension [Recovered/Resolved]
  - Acute kidney injury [Recovered/Resolved]
  - Drug interaction [Recovered/Resolved]
